FAERS Safety Report 5150253-X (Version None)
Quarter: 2006Q4

REPORT INFORMATION
  Report Type: 
  Country: None (occurrence: None)
  Receive Date: 20061109
  Receipt Date: 20061109
  Transmission Date: 20070319
  Serious: Yes (Other)
  Sender: FDA-Public Use
  Company Number: None

PATIENT
  Sex: Female

DRUGS (2)
  1. SEROQUEL [Suspect]
     Dosage: 50MG QAM PO
     Route: 048
  2. SEROQUEL [Suspect]
     Dosage: 100MG QHS PO
     Route: 048

REACTIONS (1)
  - NEUTROPENIA [None]
